FAERS Safety Report 20645568 (Version 1)
Quarter: 2022Q1

REPORT INFORMATION
  Report Type: Spontaneous
  Country: CN (occurrence: CN)
  Receive Date: 20220328
  Receipt Date: 20220328
  Transmission Date: 20220424
  Serious: Yes (Other)
  Sender: FDA-Public Use
  Company Number: CN-009507513-2203CHN008461

PATIENT
  Age: 49 Year
  Sex: Male
  Weight: 74 kg

DRUGS (8)
  1. KEYTRUDA [Suspect]
     Active Substance: PEMBROLIZUMAB
     Indication: Lung neoplasm malignant
     Dosage: 200MG, Q3W  (ALSO REPORTED AS ONE TIME IN ONE DAY)
     Route: 041
     Dates: start: 20220119, end: 20220121
  2. CARBOPLATIN [Suspect]
     Active Substance: CARBOPLATIN
     Indication: Lung neoplasm malignant
     Dosage: 0.725 G, Q3W (ALSO REPORTED AS ONE TIME IN ONE DAY)
     Route: 041
     Dates: start: 20220119, end: 20220119
  3. PACLITAXEL [Suspect]
     Active Substance: PACLITAXEL
     Indication: Lung neoplasm malignant
     Dosage: 0.2 G, ON DAY 1 Q3W (ALSO REPORTED AS ONE TIME IN ONE DAY)
     Route: 041
     Dates: start: 20220119, end: 20220119
  4. PACLITAXEL [Suspect]
     Active Substance: PACLITAXEL
     Dosage: 0.2 G, ON DAY 8 Q3W (ALSO REPORTED AS ONE TIME IN ONE DAY)
     Route: 041
     Dates: start: 20220126, end: 20220126
  5. SODIUM CHLORIDE [Concomitant]
     Active Substance: SODIUM CHLORIDE
     Indication: Lung neoplasm malignant
     Dosage: 40 MILLILITER, ONCE
     Route: 041
     Dates: start: 20220119, end: 20220119
  6. SODIUM CHLORIDE [Concomitant]
     Active Substance: SODIUM CHLORIDE
     Dosage: 250 MILLILITER, ON DAY 1 Q3W
     Route: 041
     Dates: start: 20220119, end: 20220121
  7. SODIUM CHLORIDE [Concomitant]
     Active Substance: SODIUM CHLORIDE
     Dosage: 54 MILLILITER, ON DAY 8 Q3W
     Route: 041
     Dates: start: 20220126, end: 20220126
  8. DEXTROSE [Concomitant]
     Active Substance: DEXTROSE
     Indication: Lung neoplasm malignant
     Dosage: 500 MILLILITER, ON DAY 1 Q3W
     Route: 041
     Dates: start: 20220119, end: 20220119

REACTIONS (2)
  - Full blood count decreased [Recovering/Resolving]
  - Fatigue [Unknown]

NARRATIVE: CASE EVENT DATE: 20220208
